FAERS Safety Report 4317920-9 (Version None)
Quarter: 2004Q1

REPORT INFORMATION
  Report Type: 
  Country: None (occurrence: None)
  Receive Date: 20040316
  Receipt Date: 20040305
  Transmission Date: 20041129
  Serious: Yes (Hospitalization)
  Sender: FDA-Public Use
  Company Number: US-ROCHE-361117

PATIENT
  Sex: Male

DRUGS (1)
  1. ROCEPHIN [Suspect]
     Indication: PANCREATITIS
     Route: 042

REACTIONS (4)
  - ASPARTATE AMINOTRANSFERASE INCREASED [None]
  - DELIRIUM TREMENS [None]
  - DRUG WITHDRAWAL SYNDROME [None]
  - NERVOUS SYSTEM DISORDER [None]
